FAERS Safety Report 9191318 (Version 1)
Quarter: 2013Q1

REPORT INFORMATION
  Report Type: Spontaneous
  Country: GB (occurrence: GB)
  Receive Date: 20130326
  Receipt Date: 20130326
  Transmission Date: 20140127
  Serious: Yes (Hospitalization)
  Sender: FDA-Public Use
  Company Number: GB-TEVA-392317ISR

PATIENT
  Age: 66 Year
  Sex: Female

DRUGS (5)
  1. ATORVASTATIN [Suspect]
     Dosage: 10 MILLIGRAM DAILY; AT NIGHT
     Route: 048
  2. DOSULEPIN [Concomitant]
     Dosage: 75 MILLIGRAM DAILY; AT NIGHT
     Route: 048
  3. CANDESARTAN [Concomitant]
     Dosage: 8 MILLIGRAM DAILY;
     Route: 048
  4. OMEPRAZOLE [Concomitant]
     Dosage: 40 MILLIGRAM DAILY;
     Route: 048
  5. CO-CODAMOL [Concomitant]
     Dosage: 2 DOSAGE FORMS DAILY; AT NIGHT
     Route: 050

REACTIONS (8)
  - Rhabdomyolysis [Not Recovered/Not Resolved]
  - Fatigue [Not Recovered/Not Resolved]
  - Myalgia [Not Recovered/Not Resolved]
  - Alanine aminotransferase increased [Not Recovered/Not Resolved]
  - Aspartate aminotransferase increased [Not Recovered/Not Resolved]
  - Blood creatine phosphokinase increased [Not Recovered/Not Resolved]
  - Red blood cell sedimentation rate increased [Not Recovered/Not Resolved]
  - Myopathy [Not Recovered/Not Resolved]
